FAERS Safety Report 8796152 (Version 3)
Quarter: 2013Q2

REPORT INFORMATION
  Report Type: Spontaneous
  Country: US (occurrence: US)
  Receive Date: 20120920
  Receipt Date: 20130611
  Transmission Date: 20140414
  Serious: Yes (Hospitalization, Other)
  Sender: FDA-Public Use
  Company Number: US-BAYER-2012-096949

PATIENT
  Age: 24 Year
  Sex: Female
  Weight: 56.69 kg

DRUGS (8)
  1. YAZ [Suspect]
     Indication: PREMENSTRUAL SYNDROME
     Dosage: UNK
     Dates: start: 201108, end: 201110
  2. GIANVI [Suspect]
     Dosage: UNK
     Dates: start: 201108, end: 201110
  3. IBUPROFEN [Concomitant]
     Dosage: 800 MG, UNK
  4. CLONAZEPAM [Concomitant]
     Dosage: 1.5 MG, HS
     Route: 048
  5. NYSTATIN [Concomitant]
     Dosage: 100000 U, UNK
  6. KLONOPIN [Concomitant]
  7. CARISOPRODOL [Concomitant]
     Indication: MUSCLE SPASMS
     Dosage: 350 MG, BID
     Route: 048
  8. KLOR-CON [Concomitant]
     Dosage: 20 MEQ, QD
     Route: 048

REACTIONS (4)
  - Deep vein thrombosis [None]
  - Pulmonary embolism [None]
  - Pain [None]
  - Injury [None]
